FAERS Safety Report 23256007 (Version 1)
Quarter: 2023Q4

REPORT INFORMATION
  Report Type: Spontaneous
  Country: US (occurrence: US)
  Receive Date: 20231204
  Receipt Date: 20231204
  Transmission Date: 20240110
  Serious: No
  Sender: FDA-Public Use
  Company Number: US-drreddys-SPO/USA/23/0187503

PATIENT
  Age: 58 Year
  Sex: Male

DRUGS (2)
  1. DOXYCYCLINE [Suspect]
     Active Substance: DOXYCYCLINE
     Indication: Product used for unknown indication
     Dosage: 100MG DOXYCYCLINE POWDER RECONSTITUTED IN 5ML SALINE
  2. SALINE [Concomitant]
     Active Substance: SODIUM CHLORIDE
     Indication: Product used for unknown indication
     Dosage: 100MG DOXYCYCLINE POWDER RECONSTITUTED IN 5ML SALINE

REACTIONS (3)
  - Soft tissue disorder [Unknown]
  - Muscle fibrosis [Unknown]
  - Muscle strain [Unknown]
